FAERS Safety Report 5341831-3 (Version None)
Quarter: 2007Q2

REPORT INFORMATION
  Report Type: 
  Country: None (occurrence: None)
  Receive Date: 20070529
  Receipt Date: 20070529
  Transmission Date: 20071010
  Serious: Yes (Life-Threatening)
  Sender: FDA-Public Use
  Company Number: None

PATIENT
  Age: 63 Year
  Sex: Male

DRUGS (4)
  1. SEPTRA [Suspect]
     Indication: CELLULITIS
     Dosage: ORAL;160.0 MILLIGRAM
     Dates: start: 20070201, end: 20070221
  2. AMLODIPINE/BENAZAPRIL [Concomitant]
  3. IREBARTAN [Concomitant]
  4. SPIRONOLACTONE [Concomitant]

REACTIONS (2)
  - ELECTROCARDIOGRAM T WAVE PEAKED [None]
  - HYPERKALAEMIA [None]
